FAERS Safety Report 7124405-3 (Version None)
Quarter: 2010Q4

REPORT INFORMATION
  Report Type: 
  Country: None (occurrence: None)
  Receive Date: 20101126
  Receipt Date: 20101123
  Transmission Date: 20110411
  Serious: Yes (Hospitalization, Other)
  Sender: FDA-Public Use
  Company Number: IT-BRISTOL-MYERS SQUIBB COMPANY-15402142

PATIENT
  Age: 89 Year
  Sex: Female

DRUGS (4)
  1. COUMADIN [Suspect]
     Indication: PROPHYLAXIS
     Route: 048
     Dates: start: 20080101, end: 20101107
  2. ALLOPURINOL [Suspect]
     Indication: HYPERURICAEMIA
     Dosage: 1DF= 300 POSOLOGIC UNITS
     Route: 048
     Dates: start: 20090101, end: 20101107
  3. PERINDOPRIL [Concomitant]
  4. ZOLPIDEM [Concomitant]

REACTIONS (4)
  - EYELID BLEEDING [None]
  - HEAD INJURY [None]
  - RECTAL HAEMORRHAGE [None]
  - SUBARACHNOID HAEMORRHAGE [None]
